FAERS Safety Report 5096743-X (Version None)
Quarter: 2006Q3

REPORT INFORMATION
  Report Type: 
  Country: None (occurrence: None)
  Receive Date: 20060831
  Receipt Date: 20060816
  Transmission Date: 20061208
  Serious: Yes (Life-Threatening, Hospitalization)
  Sender: FDA-Public Use
  Company Number: DE-2006-022304

PATIENT
  Age: 57 Year
  Sex: Female
  Weight: 60 kg

DRUGS (1)
  1. MAGNEVIST [Suspect]
     Indication: NUCLEAR MAGNETIC RESONANCE IMAGING BRAIN
     Dosage: 20, ML 1 DOSE, INTRAVENOUS
     Route: 042
     Dates: start: 20060807, end: 20060807

REACTIONS (10)
  - ANAPHYLACTIC SHOCK [None]
  - CARDIOVASCULAR INSUFFICIENCY [None]
  - CONVULSION [None]
  - HYPERSENSITIVITY [None]
  - LOSS OF CONSCIOUSNESS [None]
  - NAUSEA [None]
  - RESTLESSNESS [None]
  - SWELLING [None]
  - URTICARIA GENERALISED [None]
  - VOMITING [None]
